FAERS Safety Report 12557371 (Version 6)
Quarter: 2017Q3

REPORT INFORMATION
  Report Type: Report from Study
  Country: AU (occurrence: AU)
  Receive Date: 20160714
  Receipt Date: 20170714
  Transmission Date: 20171127
  Serious: Yes (Death, Other)
  Sender: FDA-Public Use
  Company Number: AU-PFIZER INC-2016325242

PATIENT
  Age: 7 Year
  Sex: Female

DRUGS (2)
  1. INOTUZUMAB OZOGAMICIN [Suspect]
     Active Substance: INOTUZUMAB OZOGAMICIN
     Dosage: 0.5 MG, UNK
     Route: 042
     Dates: start: 20160810
  2. INOTUZUMAB OZOGAMICIN [Suspect]
     Active Substance: INOTUZUMAB OZOGAMICIN
     Indication: ACUTE LYMPHOCYTIC LEUKAEMIA RECURRENT
     Dosage: 0.8 MG, UNK
     Route: 042
     Dates: start: 20160803

REACTIONS (4)
  - Respiratory failure [Fatal]
  - Aspergillus infection [Fatal]
  - Adenovirus infection [Fatal]
  - Neoplasm progression [Fatal]
